FAERS Safety Report 12133794 (Version 3)
Quarter: 2016Q2

REPORT INFORMATION
  Report Type: Report from Study
  Country: US (occurrence: US)
  Receive Date: 20160301
  Receipt Date: 20160418
  Transmission Date: 20160815
  Serious: No
  Sender: FDA-Public Use
  Company Number: US-AMGEN-USASL2016023920

PATIENT
  Age: 49 Year
  Sex: Female

DRUGS (2)
  1. ENBREL [Suspect]
     Active Substance: ETANERCEPT
     Indication: PSORIASIS
  2. ENBREL [Suspect]
     Active Substance: ETANERCEPT
     Indication: PSORIATIC ARTHROPATHY
     Dosage: 50 MG, 2 TIMES/WK
     Route: 065
     Dates: start: 20160217, end: 2016

REACTIONS (12)
  - Paranasal sinus hypersecretion [Recovered/Resolved]
  - Arthralgia [Unknown]
  - Injection site reaction [Unknown]
  - Fatigue [Recovering/Resolving]
  - Psoriasis [Unknown]
  - Asthenia [Recovering/Resolving]
  - Injection site mass [Recovered/Resolved]
  - Injection site nodule [Unknown]
  - Injection site pain [Unknown]
  - Adverse drug reaction [Unknown]
  - Cough [Recovered/Resolved]
  - Injection site erythema [Recovered/Resolved]

NARRATIVE: CASE EVENT DATE: 201602
